FAERS Safety Report 13086249 (Version 1)
Quarter: 2017Q1

REPORT INFORMATION
  Report Type: Spontaneous
  Country: US (occurrence: US)
  Receive Date: 20170104
  Receipt Date: 20170104
  Transmission Date: 20170428
  Serious: No
  Sender: FDA-Public Use
  Company Number: US-ALLERGAN-1670403US

PATIENT
  Sex: Female

DRUGS (1)
  1. VRAYLAR [Suspect]
     Active Substance: CARIPRAZINE
     Indication: BIPOLAR DISORDER
     Dosage: 1.5 MG, UNK
     Route: 048
     Dates: start: 20160927, end: 20160928

REACTIONS (6)
  - Tic [Not Recovered/Not Resolved]
  - Muscle twitching [Not Recovered/Not Resolved]
  - Skin tightness [Not Recovered/Not Resolved]
  - Dystonia [Not Recovered/Not Resolved]
  - Fatigue [Not Recovered/Not Resolved]
  - Muscle rigidity [Not Recovered/Not Resolved]
